FAERS Safety Report 12875692 (Version 2)
Quarter: 2018Q1

REPORT INFORMATION
  Report Type: Spontaneous
  Country: US (occurrence: US)
  Receive Date: 20161024
  Receipt Date: 20180323
  Transmission Date: 20180508
  Serious: No
  Sender: FDA-Public Use
  Company Number: US-ASTRAZENECA-2016SF08550

PATIENT
  Sex: Male
  Weight: 68 kg

DRUGS (2)
  1. TUDORZA PRESSAIR [Suspect]
     Active Substance: ACLIDINIUM BROMIDE
     Indication: CHRONIC OBSTRUCTIVE PULMONARY DISEASE
     Route: 055
  2. TUDORZA PRESSAIR [Suspect]
     Active Substance: ACLIDINIUM BROMIDE
     Indication: EMPHYSEMA
     Route: 055

REACTIONS (5)
  - Incorrect dose administered [Unknown]
  - Candida infection [Not Recovered/Not Resolved]
  - Intentional product misuse [Unknown]
  - Choking [Unknown]
  - Device malfunction [Unknown]
